FAERS Safety Report 8348892-8 (Version None)
Quarter: 2012Q2

REPORT INFORMATION
  Report Type: 
  Country: None (occurrence: None)
  Receive Date: 20120510
  Receipt Date: 20120502
  Transmission Date: 20120825
  Serious: Yes (Hospitalization, Other)
  Sender: FDA-Public Use
  Company Number: PK-ASTELLAS-2012JP003819

PATIENT
  Age: 27 Year
  Sex: Male

DRUGS (3)
  1. TACROLIMUS [Suspect]
     Indication: IMMUNOSUPPRESSION
     Route: 065
  2. DELTACORTRIL [Suspect]
     Indication: IMMUNOSUPPRESSION
     Route: 065
  3. AZATHIOPRINE [Suspect]
     Indication: IMMUNOSUPPRESSION
     Route: 065

REACTIONS (3)
  - HEPATITIS C [None]
  - DIABETES MELLITUS [None]
  - HEPATIC FIBROSIS [None]
